FAERS Safety Report 11449538 (Version 1)
Quarter: 2015Q3

REPORT INFORMATION
  Report Type: Spontaneous
  Country: SE (occurrence: SE)
  Receive Date: 20150903
  Receipt Date: 20150903
  Transmission Date: 20151125
  Serious: Yes (Death)
  Sender: FDA-Public Use
  Company Number: PHHY2015SE102624

PATIENT
  Age: 79 Year
  Sex: Female

DRUGS (1)
  1. BISOPROLOL SANDOZ [Suspect]
     Active Substance: BISOPROLOL
     Indication: CARDIAC FAILURE
     Dosage: 10 MG, UNK
     Route: 065
     Dates: start: 20150521, end: 20150521

REACTIONS (1)
  - Hypoglycaemia [Fatal]

NARRATIVE: CASE EVENT DATE: 20150521
